FAERS Safety Report 11005829 (Version 1)
Quarter: 2015Q2

REPORT INFORMATION
  Report Type: Spontaneous
  Country: IT (occurrence: IT)
  Receive Date: 20150409
  Receipt Date: 20150409
  Transmission Date: 20150821
  Serious: Yes (Other)
  Sender: FDA-Public Use
  Company Number: IT-APOTEX-2014AP003831

PATIENT
  Age: 56 Year
  Sex: Female

DRUGS (6)
  1. SERTRALINE [Suspect]
     Active Substance: SERTRALINE HYDROCHLORIDE
     Indication: OBSESSIVE-COMPULSIVE DISORDER
     Dosage: 100 MG, QD
     Route: 065
  2. ARIPIPRAZOLE. [Interacting]
     Active Substance: ARIPIPRAZOLE
     Indication: OBSESSIVE-COMPULSIVE DISORDER
     Dosage: 2.5 MG, QD
     Route: 065
  3. PAROXETINE [Interacting]
     Active Substance: PAROXETINE\PAROXETINE HYDROCHLORIDE
     Indication: OBSESSIVE-COMPULSIVE DISORDER
     Dosage: 60 MG/DAY
     Route: 065
  4. ARIPIPRAZOLE. [Interacting]
     Active Substance: ARIPIPRAZOLE
     Indication: MAJOR DEPRESSION
     Dosage: 5 MG, QD
     Route: 065
  5. PAROXETINE [Suspect]
     Active Substance: PAROXETINE\PAROXETINE HYDROCHLORIDE
     Indication: MAJOR DEPRESSION
     Dosage: UP TO 60 MG/DIE
     Route: 065
  6. SERTRALINE [Suspect]
     Active Substance: SERTRALINE HYDROCHLORIDE
     Indication: MAJOR DEPRESSION
     Dosage: 200 MG, QD
     Route: 065

REACTIONS (6)
  - Hypomania [Recovered/Resolved]
  - Drug effect incomplete [Recovered/Resolved]
  - Drug interaction [Recovered/Resolved]
  - Paradoxical drug reaction [Recovered/Resolved]
  - Drug ineffective [Recovered/Resolved]
  - Major depression [Recovered/Resolved]
